FAERS Safety Report 9049760 (Version 3)
Quarter: 2013Q3

REPORT INFORMATION
  Report Type: Report from Study
  Country: US (occurrence: US)
  Receive Date: 20130205
  Receipt Date: 20130806
  Transmission Date: 20140515
  Serious: Yes (Hospitalization)
  Sender: FDA-Public Use
  Company Number: US-BAYER-2012-125967

PATIENT
  Age: 68 Year
  Sex: Male
  Weight: 84.8 kg

DRUGS (13)
  1. REGORAFENIB [Suspect]
     Indication: COLORECTAL CANCER METASTATIC
     Dosage: 160 MG, QD
     Route: 048
     Dates: start: 20121106, end: 20121126
  2. COMPAZINE [Concomitant]
     Indication: NAUSEA
     Dosage: DAILY DOSE 10 MG
     Route: 048
     Dates: start: 20101014
  3. CLARITIN [Concomitant]
     Indication: RHINORRHOEA
     Dosage: DAILY DOSE 10 MG
     Route: 048
     Dates: start: 20121025
  4. CLARITIN [Concomitant]
     Indication: SEASONAL ALLERGY
  5. SENOKOT [Concomitant]
     Indication: CONSTIPATION
     Dosage: DAILY DOSE 2 DF
     Route: 048
     Dates: start: 20100424
  6. MULTIVITAMIN [Concomitant]
     Indication: VITAMIN SUPPLEMENTATION
  7. ADVIL [Concomitant]
     Indication: PAIN
     Dosage: DAILY DOSE 400 MG, PRN
     Dates: start: 20100831
  8. IMODIUM [Concomitant]
     Indication: DIARRHOEA
     Dosage: 1-2 TABS
     Route: 048
     Dates: start: 20121023
  9. NORMAL SALINE [Concomitant]
     Indication: HYPOTENSION
     Dosage: 0.9 %, 1000 ML ON 27-NOV-2012
     Route: 042
  10. PERCOCET [Concomitant]
     Indication: PROCEDURAL PAIN
     Dosage: DAILY DOSE 1-2 TABS, PRN
     Route: 048
     Dates: start: 20121208
  11. COLACE [Concomitant]
     Indication: CONSTIPATION
     Dosage: DAILY DOSE 1 TAB, PRN
     Route: 048
     Dates: start: 20121208
  12. LEVOFLOXACIN [Concomitant]
     Indication: PROPHYLAXIS
     Dosage: 500 MG, QD
     Route: 048
     Dates: start: 20121208, end: 20121210
  13. FLAGYL [Concomitant]
     Indication: PROPHYLAXIS
     Dosage: 500 MG, TID
     Route: 048
     Dates: start: 20121208, end: 20121210

REACTIONS (3)
  - Rectal haemorrhage [Recovered/Resolved]
  - Hypotension [Recovered/Resolved]
  - Dyspnoea [Not Recovered/Not Resolved]
